FAERS Safety Report 20540807 (Version 1)
Quarter: 2022Q1

REPORT INFORMATION
  Report Type: Spontaneous
  Country: CA (occurrence: CA)
  Receive Date: 20220302
  Receipt Date: 20220302
  Transmission Date: 20220424
  Serious: Yes (Hospitalization, Other)
  Sender: FDA-Public Use
  Company Number: CA-JNJFOC-20211138235

PATIENT
  Age: 19 Year
  Sex: Female
  Weight: 73 kg

DRUGS (4)
  1. REMICADE [Suspect]
     Active Substance: INFLIXIMAB
     Indication: Colitis ulcerative
     Route: 042
  2. MESALAMINE [Concomitant]
     Active Substance: MESALAMINE
     Dosage: TABLET (DELAYED AND EXTENDED RELEASE)
  3. PENTASA [Concomitant]
     Active Substance: MESALAMINE
  4. PREDNISONE [Concomitant]
     Active Substance: PREDNISONE

REACTIONS (6)
  - Pharyngitis streptococcal [Not Recovered/Not Resolved]
  - Condition aggravated [Not Recovered/Not Resolved]
  - Pyrexia [Not Recovered/Not Resolved]
  - Therapeutic product effect decreased [Not Recovered/Not Resolved]
  - Off label use [Not Recovered/Not Resolved]
  - Intentional product use issue [Not Recovered/Not Resolved]
